FAERS Safety Report 5698371-1 (Version None)
Quarter: 2008Q2

REPORT INFORMATION
  Report Type: 
  Country: None (occurrence: None)
  Receive Date: 20080403
  Receipt Date: 20080320
  Transmission Date: 20081010
  Serious: Yes (Life-Threatening)
  Sender: FDA-Public Use
  Company Number: 2008S1004812

PATIENT
  Age: 77 Year
  Sex: Female

DRUGS (10)
  1. CIPROFLOXACIN [Suspect]
     Indication: DRUG USE FOR UNKNOWN INDICATION
  2. SIMVASTATIN [Suspect]
     Dosage: 40 MG
  3. ASPIRIN [Concomitant]
  4. CIMETIDINE [Concomitant]
  5. FUROSEMIDE [Concomitant]
  6. ISOSORBIDE MONONITRATE [Concomitant]
  7. LEVOTHYROXINE SODIUM [Concomitant]
  8. NICORANDIL [Concomitant]
  9. PINDOLOL [Concomitant]
  10. SIMVASTATIN [Concomitant]

REACTIONS (4)
  - DRUG INTERACTION [None]
  - POLYMYOSITIS [None]
  - RHABDOMYOLYSIS [None]
  - URINARY TRACT INFECTION [None]
